FAERS Safety Report 12566425 (Version 1)
Quarter: 2016Q3

REPORT INFORMATION
  Report Type: Report from Study
  Country: CA (occurrence: CA)
  Receive Date: 20160718
  Receipt Date: 20160718
  Transmission Date: 20161109
  Serious: Yes (Other)
  Sender: FDA-Public Use
  Company Number: CA-JNJFOC-20160603271

PATIENT
  Age: 35 Year
  Sex: Male
  Weight: 70.2 kg

DRUGS (3)
  1. REMICADE [Suspect]
     Active Substance: INFLIXIMAB
     Indication: CROHN^S DISEASE
     Route: 042
     Dates: start: 20160601
  2. PURINETHOL [Concomitant]
     Active Substance: MERCAPTOPURINE
     Route: 065
  3. REMICADE [Suspect]
     Active Substance: INFLIXIMAB
     Indication: CROHN^S DISEASE
     Dosage: ONCE EVERY 6-8 WEEKS; THERAPY DURATION: 1 HOUR
     Route: 042
     Dates: start: 20150812

REACTIONS (5)
  - Arthralgia [Not Recovered/Not Resolved]
  - Diarrhoea [Unknown]
  - Rectal stenosis [Unknown]
  - Off label use [Unknown]
  - Product use issue [Unknown]

NARRATIVE: CASE EVENT DATE: 20150812
